FAERS Safety Report 5812744-5 (Version None)
Quarter: 2008Q3

REPORT INFORMATION
  Report Type: 
  Country: None (occurrence: None)
  Receive Date: 20080717
  Receipt Date: 20080708
  Transmission Date: 20090109
  Serious: Yes (Other)
  Sender: FDA-Public Use
  Company Number: US-BAYER-200817001GPV

PATIENT
  Age: 79 Year
  Sex: Male
  Weight: 65 kg

DRUGS (2)
  1. CAMPATH [Suspect]
     Indication: CHRONIC LYMPHOCYTIC LEUKAEMIA
     Dosage: UNIT DOSE: 30 MG
     Route: 058
     Dates: start: 20071015, end: 20071228
  2. CAMPATH [Suspect]
     Dosage: UNIT DOSE: 30 MG
     Route: 058
     Dates: start: 20071231, end: 20080222

REACTIONS (1)
  - EAR NEOPLASM MALIGNANT [None]
